FAERS Safety Report 6054717-6 (Version None)
Quarter: 2009Q1

REPORT INFORMATION
  Report Type: 
  Country: None (occurrence: None)
  Receive Date: 20090128
  Receipt Date: 20090122
  Transmission Date: 20090719
  Serious: Yes (Disabling)
  Sender: FDA-Public Use
  Company Number: NO-BRISTOL-MYERS SQUIBB COMPANY-14478978

PATIENT
  Age: 59 Year
  Sex: Male

DRUGS (3)
  1. IRBESARTAN AND HYDROCHLOROTHIAZIDE [Suspect]
     Indication: HYPERTENSION
     Route: 048
     Dates: start: 20010617
  2. NORVASC [Suspect]
     Indication: HYPERTENSION
     Route: 048
     Dates: start: 20011209, end: 20080930
  3. FLUTIDE [Concomitant]
     Indication: RHINITIS ALLERGIC
     Dosage: 1-4 TIMES A DAY, ONLY EPISODIC USE
     Route: 045
     Dates: start: 19980122, end: 20070901

REACTIONS (1)
  - ANOSMIA [None]
